FAERS Safety Report 10592702 (Version 2)
Quarter: 2015Q1

REPORT INFORMATION
  Report Type: Spontaneous
  Country: FR (occurrence: None)
  Receive Date: 20141117
  Receipt Date: 20150316
  Transmission Date: 20150720
  Serious: Yes (Life-Threatening, Hospitalization, Other)
  Sender: FDA-Public Use
  Company Number: 2014COV00151

PATIENT
  Age: 38 Year
  Sex: Female

DRUGS (2)
  1. NIVAQUINE [Suspect]
     Active Substance: CHLOROQUINE\CHLOROQUINE PHOSPHATE
     Indication: SYSTEMIC LUPUS ERYTHEMATOSUS
     Route: 048
     Dates: start: 200811, end: 2014
  2. PLAQUENIL [Suspect]
     Active Substance: HYDROXYCHLOROQUINE SULFATE
     Indication: SYSTEMIC LUPUS ERYTHEMATOSUS
     Route: 048
     Dates: start: 2004, end: 200610

REACTIONS (4)
  - Malaise [None]
  - Renal failure [None]
  - Atrioventricular block complete [None]
  - Bundle branch block right [None]

NARRATIVE: CASE EVENT DATE: 2009
